FAERS Safety Report 4795504-6 (Version None)
Quarter: 2005Q4

REPORT INFORMATION
  Report Type: 
  Country: None (occurrence: None)
  Receive Date: 20051006
  Receipt Date: 20051006
  Transmission Date: 20060501
  Serious: Yes (Death)
  Sender: FDA-Public Use
  Company Number: None

PATIENT
  Age: 65 Year
  Sex: Female
  Weight: 71 kg

DRUGS (1)
  1. TAMOXIFEN 20MG [Suspect]
     Indication: BREAST CANCER
     Dosage: 20MG QDAY P.O.
     Route: 048
     Dates: start: 19990510, end: 20020922

REACTIONS (1)
  - DEATH [None]
